FAERS Safety Report 17252046 (Version 2)
Quarter: 2020Q1

REPORT INFORMATION
  Report Type: Spontaneous
  Country: US (occurrence: US)
  Receive Date: 20200109
  Receipt Date: 20200207
  Transmission Date: 20200409
  Serious: No
  Sender: FDA-Public Use
  Company Number: US-IGSA-SR10009669

PATIENT
  Age: 43 Year
  Sex: Female
  Weight: 150 kg

DRUGS (4)
  1. GAMUNEX-C [Suspect]
     Active Substance: HUMAN IMMUNOGLOBULIN G
     Dosage: 15 G, B.I.WK.
     Route: 058
     Dates: start: 20191128
  2. GAMUNEX-C [Suspect]
     Active Substance: HUMAN IMMUNOGLOBULIN G
     Indication: IMMUNODEFICIENCY COMMON VARIABLE
     Dosage: 15 G, B.I.WK.
     Route: 058
     Dates: start: 20191220, end: 20191220
  3. GAMUNEX-C [Suspect]
     Active Substance: HUMAN IMMUNOGLOBULIN G
     Dosage: UNK
     Route: 058
     Dates: start: 20191220, end: 20191220
  4. GAMUNEX-C [Suspect]
     Active Substance: HUMAN IMMUNOGLOBULIN G
     Dosage: 15 G, B.I.WK.
     Route: 058
     Dates: start: 201908

REACTIONS (8)
  - Pyrexia [Recovering/Resolving]
  - Dizziness [Unknown]
  - Flushing [Unknown]
  - Rash [Recovering/Resolving]
  - Pulmonary congestion [Unknown]
  - Blister [Recovering/Resolving]
  - Fatigue [Recovering/Resolving]
  - Conjunctivitis [Recovering/Resolving]

NARRATIVE: CASE EVENT DATE: 20191220
